FAERS Safety Report 7150111-5 (Version None)
Quarter: 2010Q4

REPORT INFORMATION
  Report Type: 
  Country: None (occurrence: None)
  Receive Date: 20101210
  Receipt Date: 20101129
  Transmission Date: 20110411
  Serious: Yes (Other)
  Sender: FDA-Public Use
  Company Number: JP-ELI_LILLY_AND_COMPANY-JP201011003590

PATIENT
  Age: 13 Year
  Sex: Male

DRUGS (3)
  1. STRATTERA [Suspect]
     Indication: ATTENTION DEFICIT/HYPERACTIVITY DISORDER
     Dosage: 15 MG, UNK
     Route: 048
     Dates: start: 20091225, end: 20091225
  2. STRATTERA [Suspect]
     Dosage: 15 MG, UNK
     Route: 048
     Dates: start: 20091227, end: 20091228
  3. CONCERTA [Concomitant]
     Indication: ATTENTION DEFICIT/HYPERACTIVITY DISORDER
     Route: 048
     Dates: start: 20080301

REACTIONS (1)
  - EPILEPSY [None]
